FAERS Safety Report 5652534-X (Version None)
Quarter: 2008Q1

REPORT INFORMATION
  Report Type: 
  Country: None (occurrence: None)
  Receive Date: 20080306
  Receipt Date: 20080227
  Transmission Date: 20080703
  Serious: Yes (Hospitalization)
  Sender: FDA-Public Use
  Company Number: DE-ASTRAZENECA-2008PK00426

PATIENT
  Age: 7335 Day
  Sex: Female

DRUGS (2)
  1. SYMBICORT [Suspect]
     Indication: ASTHMA
     Dosage: 160/4.5 UG BID
     Route: 055
     Dates: start: 20070824
  2. SYMBICORT [Suspect]
     Dosage: 160/4.5 UG PRN
     Route: 055
     Dates: start: 20070824

REACTIONS (1)
  - FIBROMYALGIA [None]
